FAERS Safety Report 8158453-1 (Version None)
Quarter: 2012Q1

REPORT INFORMATION
  Report Type: 
  Country: None (occurrence: None)
  Receive Date: 20120223
  Receipt Date: 20120216
  Transmission Date: 20120608
  Serious: No
  Sender: FDA-Public Use
  Company Number: US-PFIZER INC-2012043295

PATIENT
  Sex: Female
  Weight: 70.2 kg

DRUGS (3)
  1. AMOXICILLIN [Suspect]
     Dosage: UNK
  2. OXYCODONE HYDROCHLORIDE [Suspect]
     Dosage: UNK
  3. PREDNISONE [Suspect]
     Dosage: 10 MG, UNK (1-4 TABLETS AS DIRECTED)
     Route: 048

REACTIONS (1)
  - DRUG HYPERSENSITIVITY [None]
